FAERS Safety Report 24304758 (Version 2)
Quarter: 2024Q4

REPORT INFORMATION
  Report Type: Spontaneous
  Country: JP (occurrence: JP)
  Receive Date: 20240910
  Receipt Date: 20241205
  Transmission Date: 20250115
  Serious: Yes (Other)
  Sender: NOVARTIS
  Company Number: JP-002147023-NVSJ2024JP010730

PATIENT

DRUGS (2)
  1. TABRECTA [Suspect]
     Active Substance: CAPMATINIB
     Indication: Lung neoplasm malignant
     Dosage: 400 MG, BID
     Route: 048
     Dates: start: 202408
  2. TABRECTA [Suspect]
     Active Substance: CAPMATINIB
     Dosage: DOSE REDUCED
     Route: 048

REACTIONS (1)
  - Liver disorder [Not Recovered/Not Resolved]
